FAERS Safety Report 17566864 (Version 1)
Quarter: 2020Q1

REPORT INFORMATION
  Report Type: Spontaneous
  Country: US (occurrence: US)
  Receive Date: 20200320
  Receipt Date: 20200320
  Transmission Date: 20200409
  Serious: Yes (Other)
  Sender: FDA-Public Use
  Company Number: US-MEITHEAL PHARMACEUTICALS-2020MHL00011

PATIENT

DRUGS (3)
  1. CARBOPLATIN. [Suspect]
     Active Substance: CARBOPLATIN
     Indication: BRAIN NEOPLASM
     Dosage: UNK UNK, 2X/DAY (ON DAYS -4 AND -3)
     Route: 065
  2. CARBOPLATIN. [Suspect]
     Active Substance: CARBOPLATIN
     Dosage: 50% OF ORGINAL DOSE, 2X/DAY (ON DAYS -4 AND -3)
     Route: 065
  3. THIOTEPA. [Concomitant]
     Active Substance: THIOTEPA
     Dosage: 10 MG/KG, 1X/DAY (ON DAYS -4 AND -3)
     Route: 065

REACTIONS (1)
  - Nephropathy toxic [Recovered/Resolved]
